FAERS Safety Report 6202346-3 (Version None)
Quarter: 2009Q2

REPORT INFORMATION
  Report Type: 
  Country: None (occurrence: None)
  Receive Date: 20090526
  Receipt Date: 20090519
  Transmission Date: 20091009
  Serious: Yes (Other)
  Sender: FDA-Public Use
  Company Number: US-GENENTECH-283431

PATIENT
  Sex: Male
  Weight: 129.25 kg

DRUGS (1)
  1. RAPTIVA [Suspect]
     Indication: PSORIASIS
     Dosage: 1.25 ML, 1/WEEK
     Route: 058
     Dates: start: 20060501, end: 20090401

REACTIONS (3)
  - DYSPNOEA [None]
  - FEELING HOT [None]
  - PSORIASIS [None]
